FAERS Safety Report 10387410 (Version 1)
Quarter: 2014Q3

REPORT INFORMATION
  Report Type: Spontaneous
  Country: FR (occurrence: FR)
  Receive Date: 20140815
  Receipt Date: 20140815
  Transmission Date: 20150326
  Serious: Yes (Life-Threatening, Hospitalization)
  Sender: FDA-Public Use
  Company Number: FR-ELI_LILLY_AND_COMPANY-FR201408003016

PATIENT
  Age: 73 Year
  Sex: Female

DRUGS (19)
  1. CYMBALTA [Suspect]
     Active Substance: DULOXETINE HYDROCHLORIDE
     Indication: DEPRESSION
     Dosage: UNK, UNKNOWN
     Route: 048
     Dates: start: 201406
  2. MYSOLINE [Suspect]
     Active Substance: PRIMIDONE
     Dosage: 250 MG, QD
     Route: 048
     Dates: start: 20140626
  3. AROMASIN [Concomitant]
     Active Substance: EXEMESTANE
     Indication: BREAST CANCER
     Dosage: 25 MG, QD
     Route: 048
  4. DAFALGAN [Concomitant]
     Active Substance: ACETAMINOPHEN
     Dosage: UNK, UNKNOWN
     Route: 065
  5. KARDEGIC [Concomitant]
     Active Substance: ASPIRIN LYSINE
     Dosage: 75 MG, QD
     Route: 065
  6. TAHOR [Concomitant]
     Active Substance: ATORVASTATIN CALCIUM
     Dosage: 10 MG, QD
     Route: 065
  7. GLUCOPHAGE [Concomitant]
     Active Substance: METFORMIN HYDROCHLORIDE
     Dosage: 1000 MG, TID
  8. MIANSERINE [Concomitant]
     Active Substance: MIANSERIN HYDROCHLORIDE
     Dosage: UNK UNK, UNKNOWN
     Route: 065
     Dates: start: 201309
  9. THERALENE [Concomitant]
     Active Substance: TRIMEPRAZINE
     Dosage: 10 GTT, QD
  10. IMOVANE [Suspect]
     Active Substance: ZOPICLONE
     Indication: DEPRESSION
     Dosage: 7.5 MG, UNKNOWN
     Route: 048
     Dates: start: 201406, end: 201406
  11. TRINITRINE [Concomitant]
     Active Substance: NITROGLYCERIN
     Dosage: 10 MG, QD
     Route: 065
  12. NOVONORM [Concomitant]
     Active Substance: REPAGLINIDE
     Dosage: 2 MG, TID
     Route: 065
  13. VITAMIN B12 [Concomitant]
     Active Substance: CYANOCOBALAMIN
     Dosage: UNK, MONTHLY (1/M)
     Route: 065
  14. MYSOLINE [Suspect]
     Active Substance: PRIMIDONE
     Indication: ESSENTIAL TREMOR
     Dosage: 250 MG, QD
     Route: 048
     Dates: start: 20140313, end: 20140620
  15. BI TILDIEM [Concomitant]
     Active Substance: DILTIAZEM HYDROCHLORIDE
     Dosage: 90 MG, BID
     Route: 065
  16. EUPANTOL [Concomitant]
     Active Substance: PANTOPRAZOLE SODIUM
     Dosage: 20 MG, QD
     Route: 065
  17. SERESTA [Concomitant]
     Active Substance: OXAZEPAM
     Dosage: 2 DF, QD
     Route: 065
  18. NEURONTIN [Concomitant]
     Active Substance: GABAPENTIN
     Dosage: 600 MG, TID
     Route: 065
  19. SPECIAFOLDINE [Concomitant]
     Active Substance: FOLIC ACID
     Dosage: 5 MG, QD
     Route: 065

REACTIONS (2)
  - Depression [Not Recovered/Not Resolved]
  - Depression suicidal [Recovered/Resolved]

NARRATIVE: CASE EVENT DATE: 20140618
